FAERS Safety Report 6496157-1 (Version None)
Quarter: 2009Q4

REPORT INFORMATION
  Report Type: 
  Country: None (occurrence: None)
  Receive Date: 20091214
  Receipt Date: 20091021
  Transmission Date: 20100525
  Serious: Yes (Hospitalization)
  Sender: FDA-Public Use
  Company Number: US-BRISTOL-MYERS SQUIBB COMPANY-14810113

PATIENT
  Age: 62 Year
  Sex: Male

DRUGS (9)
  1. ABILIFY [Suspect]
     Indication: MAJOR DEPRESSION
     Dosage: HE TOOK EIGHT 2MG (16MG) TABLETS.
     Route: 048
     Dates: start: 20090921
  2. LITHIUM [Concomitant]
  3. CYMBALTA [Concomitant]
  4. METOPROLOL [Concomitant]
  5. ISORDIL [Concomitant]
  6. ENALAPRIL [Concomitant]
  7. PLAVIX [Concomitant]
  8. ASPIRIN [Concomitant]
  9. VYTORIN [Concomitant]

REACTIONS (2)
  - AGGRESSION [None]
  - CEREBROVASCULAR ACCIDENT [None]
